APPROVED DRUG PRODUCT: MORPHINE SULFATE
Active Ingredient: MORPHINE SULFATE
Strength: 100MG/5ML
Dosage Form/Route: SOLUTION;ORAL
Application: N201517 | Product #001
Applicant: CHARTWELL MOLECULAR HOLDINGS LLC
Approved: Jun 23, 2011 | RLD: No | RS: No | Type: DISCN